FAERS Safety Report 4439511-1 (Version None)
Quarter: 2004Q3

REPORT INFORMATION
  Report Type: 
  Country: None (occurrence: None)
  Receive Date: 20040901
  Receipt Date: 20040901
  Transmission Date: 20050211
  Serious: Yes (Hospitalization)
  Sender: FDA-Public Use
  Company Number: None

PATIENT
  Sex: Female
  Weight: 84.8226 kg

DRUGS (7)
  1. LAMICTAL [Suspect]
     Indication: CONVULSION
     Dosage: PO [STARTED 2 WEEKS PRIOR TO ADMISSION]
     Route: 048
  2. MULTIVITAMIN [Concomitant]
  3. LASIX [Concomitant]
  4. POTASSIUM [Concomitant]
  5. VALPROIC ACID [Concomitant]
  6. CELEBREX [Concomitant]
  7. NEURONTIN [Concomitant]

REACTIONS (4)
  - BURNING SENSATION [None]
  - OEDEMA PERIPHERAL [None]
  - PRURITUS [None]
  - RASH [None]
